FAERS Safety Report 15134845 (Version 1)
Quarter: 2018Q3

REPORT INFORMATION
  Report Type: Report from Study
  Country: ZA (occurrence: ZA)
  Receive Date: 20180712
  Receipt Date: 20180712
  Transmission Date: 20181010
  Serious: Yes (Other)
  Sender: FDA-Public Use
  Company Number: ZA-PFIZER INC-2018229879

PATIENT
  Sex: Male
  Weight: 46.6 kg

DRUGS (20)
  1. PZA [Concomitant]
     Active Substance: PYRAZINAMIDE
     Dosage: UNK
  2. TRD [Concomitant]
     Dosage: UNK
  3. B6 [Concomitant]
     Active Substance: PYRIDOXINE HYDROCHLORIDE
     Indication: NEUROPATHY PERIPHERAL
     Dosage: UNK
  4. BDQ [Concomitant]
     Dosage: UNK
     Route: 048
     Dates: start: 20180327
  5. CFZ (CLOFAZIMINE) [Concomitant]
     Active Substance: CLOFAZIMINE
     Dosage: UNK
     Dates: start: 20180214
  6. LOSEC [Concomitant]
     Active Substance: OMEPRAZOLE
  7. LINEZOLID. [Suspect]
     Active Substance: LINEZOLID
     Dosage: UNK
     Route: 048
     Dates: start: 200804, end: 20180603
  8. PAS [Suspect]
     Active Substance: AMINOSALICYLIC ACID
     Indication: PULMONARY TUBERCULOSIS
     Dosage: 8 G, QD
     Route: 048
     Dates: start: 20180214, end: 20180506
  9. PZA [Concomitant]
     Active Substance: PYRAZINAMIDE
     Dosage: UNK
     Dates: start: 20180214
  10. KANA (KANAMYCIN SULFATE) [Suspect]
     Active Substance: KANAMYCIN SULFATE
     Indication: PULMONARY TUBERCULOSIS
     Dosage: 750 MG, 6X WEEK
     Route: 030
     Dates: start: 20180216, end: 20180422
  11. KANA (KANAMYCIN SULFATE) [Suspect]
     Active Substance: KANAMYCIN SULFATE
     Dosage: UNK
     Route: 030
     Dates: end: 20180514
  12. INH [Concomitant]
     Active Substance: ISONIAZID
     Indication: TUBERCULOSIS
     Dosage: UNK
     Dates: start: 20180327
  13. LFX [Concomitant]
     Dosage: UNK
     Dates: start: 20180214, end: 20180518
  14. B6 [Concomitant]
     Active Substance: PYRIDOXINE HYDROCHLORIDE
     Indication: PROPHYLAXIS
     Dosage: UNK
  15. ETHIONAMIDE [Suspect]
     Active Substance: ETHIONAMIDE
     Indication: PULMONARY TUBERCULOSIS
     Dosage: 750 MG, QD (NOCTE)
     Route: 048
     Dates: start: 20180327, end: 20180413
  16. ELTROXIN [Concomitant]
     Active Substance: LEVOTHYROXINE
     Indication: HYPOTHYROIDISM
     Dosage: UNK
     Dates: start: 20180410
  17. LINEZOLID. [Suspect]
     Active Substance: LINEZOLID
     Indication: PULMONARY TUBERCULOSIS
     Dosage: 600 MG, QD
     Route: 048
     Dates: start: 20180214, end: 201804
  18. DELAMANID [Suspect]
     Active Substance: DELAMANID
     Indication: PULMONARY TUBERCULOSIS
     Dosage: 100 MG, BID
     Route: 048
     Dates: start: 20180327
  19. TRD [Concomitant]
     Dosage: UNK
     Dates: start: 20180214, end: 20180518
  20. INH [Concomitant]
     Active Substance: ISONIAZID
     Dosage: UNK

REACTIONS (20)
  - Haemoptysis [Recovered/Resolved]
  - Weight decreased [None]
  - Dehydration [None]
  - Blood phosphorus increased [None]
  - Blood sodium decreased [None]
  - Blood urea increased [None]
  - Oedema [None]
  - Blood bilirubin increased [None]
  - Anaemia [Recovered/Resolved]
  - Abdominal tenderness [None]
  - Blood albumin decreased [None]
  - White blood cell count increased [None]
  - Platelet count increased [None]
  - Ototoxicity [Not Recovered/Not Resolved]
  - Vomiting [Recovered/Resolved]
  - Alanine aminotransferase decreased [None]
  - Blood alkaline phosphatase increased [None]
  - Protein total increased [None]
  - Blood bicarbonate decreased [None]
  - Gamma-glutamyltransferase increased [None]

NARRATIVE: CASE EVENT DATE: 20180331
